FAERS Safety Report 9017199 (Version 1)
Quarter: 2013Q1

REPORT INFORMATION
  Report Type: Spontaneous
  Country: US (occurrence: US)
  Receive Date: 20130117
  Receipt Date: 20130117
  Transmission Date: 20140127
  Serious: Yes (Death)
  Sender: FDA-Public Use
  Company Number: US-PFIZER INC-2013014498

PATIENT
  Sex: 0

DRUGS (1)
  1. SUMATRIPTAN SUCCINATE [Suspect]
     Dosage: UNK
     Route: 058

REACTIONS (1)
  - Cardiac arrest [Fatal]
